FAERS Safety Report 20216055 (Version 1)
Quarter: 2021Q4

REPORT INFORMATION
  Report Type: Spontaneous
  Country: GB (occurrence: GB)
  Receive Date: 20211222
  Receipt Date: 20211222
  Transmission Date: 20220303
  Serious: Yes (Other)
  Sender: FDA-Public Use
  Company Number: GB-STADA-237994

PATIENT
  Sex: Male

DRUGS (2)
  1. WARFARIN [Interacting]
     Active Substance: WARFARIN
     Indication: Product used for unknown indication
     Route: 065
  2. HERBALS [Interacting]
     Active Substance: HERBALS
     Indication: Product used for unknown indication
     Route: 065

REACTIONS (2)
  - International normalised ratio decreased [Not Recovered/Not Resolved]
  - Drug interaction [Unknown]
